FAERS Safety Report 10885245 (Version 1)
Quarter: 2015Q1

REPORT INFORMATION
  Report Type: Spontaneous
  Country: US (occurrence: None)
  Receive Date: 20150227
  Receipt Date: 20150227
  Transmission Date: 20150721
  Serious: Yes (Hospitalization)
  Sender: FDA-Public Use
  Company Number: None

PATIENT
  Age: 71 Year
  Sex: Female
  Weight: 100 kg

DRUGS (5)
  1. ZOFRAN [Concomitant]
     Active Substance: ONDANSETRON HYDROCHLORIDE
  2. TRAMADOL [Concomitant]
     Active Substance: TRAMADOL
  3. COLACE [Concomitant]
     Active Substance: DOCUSATE SODIUM
  4. IBUPROFEN. [Concomitant]
     Active Substance: IBUPROFEN
  5. WARFARIN 2.5MG AND 1MG [Suspect]
     Active Substance: WARFARIN
     Indication: DEEP VEIN THROMBOSIS
     Route: 048

REACTIONS (2)
  - Acute kidney injury [None]
  - Toxicity to various agents [None]

NARRATIVE: CASE EVENT DATE: 20150221
